FAERS Safety Report 23920853 (Version 1)
Quarter: 2024Q2

REPORT INFORMATION
  Report Type: Spontaneous
  Country: US (occurrence: US)
  Receive Date: 20240530
  Receipt Date: 20240530
  Transmission Date: 20240715
  Serious: Yes (Hospitalization, Other)
  Sender: FDA-Public Use
  Company Number: US-ALEMBIC PHARMACUETICALS LIMITED-2024SCAL000679

PATIENT

DRUGS (1)
  1. TIZANIDINE HYDROCHLORIDE [Suspect]
     Active Substance: TIZANIDINE HYDROCHLORIDE
     Indication: Product used for unknown indication
     Dosage: 12-26 MG
     Route: 048

REACTIONS (8)
  - Apnoea [Recovered/Resolved]
  - Miosis [Unknown]
  - Pupillary reflex impaired [Unknown]
  - Mental status changes [Recovering/Resolving]
  - Sinus bradycardia [Unknown]
  - Somnolence [Unknown]
  - Overdose [Unknown]
  - Depressed level of consciousness [Recovering/Resolving]
